FAERS Safety Report 8271438 (Version 2)
Quarter: 2020Q3

REPORT INFORMATION
  Report Type: Report from Study
  Country: GB (occurrence: TH)
  Receive Date: 20111201
  Receipt Date: 20111207
  Transmission Date: 20201104
  Serious: Yes (Life-Threatening, Hospitalization, Other)
  Sender: FDA-Public Use
  Company Number: TH-JNJFOC-20111111431

PATIENT
  Age: 78 Year
  Sex: Male
  Weight: 78 kg

DRUGS (10)
  1. RIVAROXABAN [Suspect]
     Active Substance: RIVAROXABAN
     Indication: PULMONARY EMBOLISM
     Route: 048
     Dates: start: 20101005, end: 20101007
  2. HEPARIN [Concomitant]
     Active Substance: HEPARIN SODIUM
     Route: 040
     Dates: start: 20101007, end: 20101007
  3. ZYRTEC [Concomitant]
     Active Substance: CETIRIZINE HYDROCHLORIDE
     Indication: NASAL CONGESTION
     Route: 048
     Dates: start: 20101013
  4. RIVAROXABAN [Suspect]
     Active Substance: RIVAROXABAN
     Indication: EMBOLISM VENOUS
     Route: 048
     Dates: start: 20101005, end: 20101007
  5. OXYGEN. [Concomitant]
     Active Substance: OXYGEN
     Route: 045
  6. SENOKOT [Concomitant]
     Active Substance: SENNOSIDES
     Route: 048
     Dates: start: 20101007, end: 20101022
  7. HEPARIN [Suspect]
     Active Substance: HEPARIN SODIUM
     Indication: PULMONARY EMBOLISM
     Dosage: 1200 U/HR
     Route: 041
     Dates: start: 20101007, end: 20101008
  8. CETIRIZINE HYDROCHLORIDE. [Concomitant]
     Active Substance: CETIRIZINE HYDROCHLORIDE
     Indication: PROPHYLAXIS AGAINST GASTROINTESTINAL ULCER
     Route: 048
     Dates: start: 20101009
  9. PROTAMINE SULFATE. [Concomitant]
     Active Substance: PROTAMINE SULFATE
     Indication: OVERDOSE
     Dates: start: 20101009, end: 20101009
  10. AMOXICILLIN AND CLAVULANATE POTASSIUM [Concomitant]
     Active Substance: AMOXICILLIN\CLAVULANATE POTASSIUM
     Indication: PHARYNGITIS
     Route: 048
     Dates: start: 20101009, end: 20101018

REACTIONS (2)
  - Respiratory failure [Recovered/Resolved]
  - Post procedural haemorrhage [Recovered/Resolved]

NARRATIVE: CASE EVENT DATE: 20101007
